FAERS Safety Report 17931066 (Version 1)
Quarter: 2020Q2

REPORT INFORMATION
  Report Type: Spontaneous
  Country: CA (occurrence: CA)
  Receive Date: 20200623
  Receipt Date: 20200623
  Transmission Date: 20200714
  Serious: Yes (Life-Threatening)
  Sender: FDA-Public Use
  Company Number: CA-PFIZER INC-2020240592

PATIENT
  Age: 82 Year
  Sex: Female

DRUGS (1)
  1. MORPHINE SULFATE. [Suspect]
     Active Substance: MORPHINE SULFATE
     Indication: CANCER PAIN
     Dosage: 1000 MG (IN THE HOUR PRIOR TO SEIZURE (MAXIMUM RATE))

REACTIONS (3)
  - Seizure [Recovering/Resolving]
  - Neurotoxicity [Unknown]
  - Myoclonus [Unknown]
